FAERS Safety Report 8617787-4 (Version None)
Quarter: 2012Q3

REPORT INFORMATION
  Report Type: 
  Country: None (occurrence: None)
  Receive Date: 20120824
  Receipt Date: 20120329
  Transmission Date: 20120928
  Serious: No
  Sender: FDA-Public Use
  Company Number: US-ASTRAZENECA-2012SE11522

PATIENT
  Sex: Female

DRUGS (9)
  1. HYDROCHLOROTHIAZIDE [Concomitant]
  2. PRAVASTATIN [Concomitant]
  3. DILTIAZEM [Concomitant]
  4. PHENAFEXIDINE [Concomitant]
  5. ALBUTEROL [Concomitant]
  6. NITROFUERANT [Concomitant]
  7. SYMBICORT [Suspect]
     Indication: CHRONIC OBSTRUCTIVE PULMONARY DISEASE
     Dosage: 160/4.5 MCG, TWO PUFFS BID
     Route: 055
  8. DIGOXIN [Concomitant]
  9. VENTALIN [Concomitant]

REACTIONS (2)
  - COUGH [None]
  - DYSPNOEA [None]
